FAERS Safety Report 9516036 (Version 2)
Quarter: 2013Q3

REPORT INFORMATION
  Report Type: Spontaneous
  Country: US (occurrence: US)
  Receive Date: 20130911
  Receipt Date: 20130913
  Transmission Date: 20140515
  Serious: Yes (Other)
  Sender: FDA-Public Use
  Company Number: CHPA2013US013944

PATIENT
  Age: 79 Year
  Sex: Male

DRUGS (1)
  1. VOLTAREN GEL [Suspect]
     Indication: PARAESTHESIA
     Dosage: UNK, UNK
     Route: 061
     Dates: start: 201308

REACTIONS (4)
  - Localised infection [Unknown]
  - Off label use [Unknown]
  - Drug dispensed to wrong patient [Unknown]
  - Therapeutic response unexpected [Unknown]
